FAERS Safety Report 24819375 (Version 3)
Quarter: 2025Q4

REPORT INFORMATION
  Report Type: Spontaneous
  Country: CA (occurrence: CA)
  Receive Date: 20250108
  Receipt Date: 20251112
  Transmission Date: 20260118
  Serious: Yes (Hospitalization, Disabling, Other)
  Sender: SANDOZ
  Company Number: CA-MLMSERVICE-20240719-PI137468-00206-4

PATIENT
  Age: 4 Decade
  Sex: Female

DRUGS (21)
  1. ARIPIPRAZOLE [Suspect]
     Active Substance: ARIPIPRAZOLE
     Indication: Major depression
     Dosage: UNK
     Route: 065
  2. ARIPIPRAZOLE [Suspect]
     Active Substance: ARIPIPRAZOLE
     Indication: Schizoaffective disorder
     Dosage: UNK
     Route: 065
  3. CLOZAPINE [Suspect]
     Active Substance: CLOZAPINE
     Indication: Schizoaffective disorder
     Dosage: 400 MG, QD
     Route: 065
  4. CLOZAPINE [Suspect]
     Active Substance: CLOZAPINE
     Dosage: 500.0 MG,EVERY 2 DAYS
     Route: 065
  5. CLOZAPINE [Suspect]
     Active Substance: CLOZAPINE
     Dosage: 525.0 MG,EVERY 2 DAYS
     Route: 065
  6. CLOZAPINE [Suspect]
     Active Substance: CLOZAPINE
     Dosage: 600.0 MG,EVERY 2 DAYS
     Route: 065
  7. LORAZEPAM [Suspect]
     Active Substance: LORAZEPAM
     Indication: Schizoaffective disorder
     Dosage: 1 MG, BID
     Route: 065
  8. LORAZEPAM [Suspect]
     Active Substance: LORAZEPAM
     Indication: Schizoaffective disorder
     Dosage: 20 MG, QD
     Route: 065
  9. LORAZEPAM [Suspect]
     Active Substance: LORAZEPAM
     Indication: Generalised anxiety disorder
     Dosage: UNK
     Route: 065
  10. LORAZEPAM [Suspect]
     Active Substance: LORAZEPAM
     Indication: Major depression
     Dosage: UNK
     Route: 065
  11. OLANZAPINE [Suspect]
     Active Substance: OLANZAPINE
     Indication: Schizoaffective disorder
     Dosage: 20 MG, QD
     Route: 065
  12. PALIPERIDONE [Suspect]
     Active Substance: PALIPERIDONE
     Indication: Schizoaffective disorder
     Dosage: 400 MG, QD
     Route: 065
  13. PERPHENAZINE [Suspect]
     Active Substance: PERPHENAZINE
     Indication: Product used for unknown indication
     Dosage: UNK
     Route: 065
  14. QUETIAPINE [Suspect]
     Active Substance: QUETIAPINE
     Indication: Schizoaffective disorder
     Dosage: 400 MG, QD, MAXIMUM DOSE, TABLET
     Route: 048
  15. QUETIAPINE [Suspect]
     Active Substance: QUETIAPINE
     Dosage: UNK
     Route: 065
  16. SERTRALINE HYDROCHLORIDE [Suspect]
     Active Substance: SERTRALINE HYDROCHLORIDE
     Dosage: 125.0 MG, QD
     Route: 065
  17. SERTRALINE HYDROCHLORIDE [Suspect]
     Active Substance: SERTRALINE HYDROCHLORIDE
     Indication: Major depression
     Dosage: 175 MG, QD, CAPSULES
     Route: 065
  18. SERTRALINE HYDROCHLORIDE [Suspect]
     Active Substance: SERTRALINE HYDROCHLORIDE
     Dosage: 200 MG, QD
     Route: 065
  19. SERTRALINE HYDROCHLORIDE [Suspect]
     Active Substance: SERTRALINE HYDROCHLORIDE
     Indication: Schizoaffective disorder
     Dosage: 200 MG, QD, CAPSULES
     Route: 065
  20. SERTRALINE HYDROCHLORIDE [Suspect]
     Active Substance: SERTRALINE HYDROCHLORIDE
     Indication: Generalised anxiety disorder
     Dosage: UNK
     Route: 065
  21. SERTRALINE HYDROCHLORIDE [Suspect]
     Active Substance: SERTRALINE HYDROCHLORIDE
     Dosage: UNK
     Route: 065

REACTIONS (7)
  - Tardive dyskinesia [Recovering/Resolving]
  - Myoclonus [Recovering/Resolving]
  - Parkinsonism [Recovering/Resolving]
  - Dyskinesia [Recovering/Resolving]
  - Dystonia [Recovering/Resolving]
  - Drug ineffective [Recovering/Resolving]
  - Product use in unapproved indication [Recovering/Resolving]
